FAERS Safety Report 7417077-1 (Version None)
Quarter: 2011Q2

REPORT INFORMATION
  Report Type: 
  Country: None (occurrence: None)
  Receive Date: 20110406
  Receipt Date: 20110323
  Transmission Date: 20111010
  Serious: Yes (Hospitalization)
  Sender: FDA-Public Use
  Company Number: 029870

PATIENT
  Sex: Male

DRUGS (2)
  1. KEPPRA [Suspect]
     Indication: EPILEPSY
     Dosage: (2000 MG,1000MG, TIMES PER DAYS 2000MG)
     Dates: start: 20090801
  2. LACOSAMIDE [Suspect]
     Indication: EPILEPSY
     Dosage: (300 MG, 50MG, TIMES PER DAYS 300MG)
     Dates: start: 20100513, end: 20110114

REACTIONS (1)
  - PSYCHOTIC DISORDER [None]
